FAERS Safety Report 19777834 (Version 1)
Quarter: 2021Q3

REPORT INFORMATION
  Report Type: Spontaneous
  Country: US (occurrence: US)
  Receive Date: 20210901
  Receipt Date: 20210901
  Transmission Date: 20211014
  Serious: Yes (Hospitalization, Other)
  Sender: FDA-Public Use
  Company Number: None

PATIENT
  Age: 38 Year
  Sex: Female
  Weight: 101.25 kg

DRUGS (6)
  1. LAMICTAL [Concomitant]
     Active Substance: LAMOTRIGINE
  2. PHENOBARBITAL. [Concomitant]
     Active Substance: PHENOBARBITAL
  3. ATIVAN [Concomitant]
     Active Substance: LORAZEPAM
  4. PAXIL [Concomitant]
     Active Substance: PAROXETINE HYDROCHLORIDE
  5. XCOPRI [Suspect]
     Active Substance: CENOBAMATE
     Indication: EPILEPSY
  6. VNS IMPLANT [Concomitant]

REACTIONS (7)
  - Eye contusion [None]
  - Contusion [None]
  - Hand fracture [None]
  - Muscle disorder [None]
  - Aggression [None]
  - Screaming [None]
  - Paranoia [None]

NARRATIVE: CASE EVENT DATE: 20210824
